FAERS Safety Report 4536089-9 (Version None)
Quarter: 2004Q4

REPORT INFORMATION
  Report Type: 
  Country: None (occurrence: None)
  Receive Date: 20041223
  Receipt Date: 20041221
  Transmission Date: 20050328
  Serious: Yes (Death)
  Sender: FDA-Public Use
  Company Number: JP-BRISTOL-MYERS SQUIBB COMPANY-12802807

PATIENT
  Age: 75 Year
  Sex: Male

DRUGS (2)
  1. TAXOL [Suspect]
     Indication: GASTRIC CANCER
     Route: 042
     Dates: end: 20041115
  2. RANDA [Suspect]
     Indication: GASTRIC CANCER
     Route: 042
     Dates: end: 20041115

REACTIONS (1)
  - BLOOD PRESSURE DECREASED [None]
